FAERS Safety Report 8007003-9 (Version None)
Quarter: 2011Q4

REPORT INFORMATION
  Report Type: 
  Country: None (occurrence: None)
  Receive Date: 20111227
  Receipt Date: 20111222
  Transmission Date: 20120403
  Serious: Yes (Other)
  Sender: FDA-Public Use
  Company Number: US-JNJFOC-2010001605

PATIENT
  Sex: Male
  Weight: 93.44 kg

DRUGS (4)
  1. ROLAIDS TAB [Suspect]
     Indication: ABDOMINAL DISCOMFORT
     Dosage: THREE TABLETS
     Route: 048
     Dates: start: 20100115, end: 20100117
  2. ROLAIDS TAB [Suspect]
     Dosage: THREE TABLETS
     Route: 048
     Dates: start: 20100115, end: 20100117
  3. NEXIUM [Concomitant]
     Indication: HYPERTENSION
     Dosage: DAILY DOSE TEXT: UNSPECIFIED
     Route: 065
  4. ROLAIDS TAB [Suspect]
     Indication: DYSPEPSIA
     Dosage: THREE TABLETS
     Route: 048
     Dates: start: 20100115, end: 20100117

REACTIONS (5)
  - DIARRHOEA [None]
  - PRODUCT QUALITY ISSUE [None]
  - NAUSEA [None]
  - VOMITING [None]
  - DEHYDRATION [None]
